FAERS Safety Report 9226005 (Version 1)
Quarter: 2013Q2

REPORT INFORMATION
  Report Type: Spontaneous
  Country: SE (occurrence: SE)
  Receive Date: 20130411
  Receipt Date: 20130411
  Transmission Date: 20140414
  Serious: Yes (Other)
  Sender: FDA-Public Use
  Company Number: SE-ALLERGAN-1305201US

PATIENT
  Age: 6 Year
  Sex: Male

DRUGS (3)
  1. BOTOX [Suspect]
     Indication: GAIT DISTURBANCE
     Dosage: 210 UNITS, SINGLE
     Route: 030
     Dates: start: 20120918, end: 20120918
  2. RESULAX RECTAL SOLUTION [Concomitant]
  3. DETRUSITOL [Concomitant]

REACTIONS (4)
  - Delirium [Unknown]
  - Vertigo [Recovered/Resolved]
  - Fatigue [Recovered/Resolved]
  - Urinary incontinence [Recovered/Resolved]
